FAERS Safety Report 13816355 (Version 1)
Quarter: 2017Q3

REPORT INFORMATION
  Report Type: Spontaneous
  Country: CH (occurrence: CH)
  Receive Date: 20170731
  Receipt Date: 20170731
  Transmission Date: 20171127
  Serious: Yes (Other)
  Sender: FDA-Public Use
  Company Number: CH-LPDUSPRD-20171070

PATIENT
  Sex: Female

DRUGS (2)
  1. FERINJECT [Suspect]
     Active Substance: FERRIC CARBOXYMALTOSE
     Dosage: UNKNOWN
     Route: 041
  2. VENOFER [Suspect]
     Active Substance: IRON SUCROSE
     Dosage: UNKNOWN
     Route: 065

REACTIONS (2)
  - Adverse event [Unknown]
  - Drug intolerance [Unknown]
